FAERS Safety Report 7926813-7 (Version None)
Quarter: 2011Q4

REPORT INFORMATION
  Report Type: 
  Country: None (occurrence: None)
  Receive Date: 20111118
  Receipt Date: 20111107
  Transmission Date: 20120403
  Serious: Yes (Hospitalization)
  Sender: FDA-Public Use
  Company Number: US-BAYER-2010-009348

PATIENT
  Age: 39 Year
  Sex: Female
  Weight: 48 kg

DRUGS (16)
  1. AMITRIPTYLINE HCL [Concomitant]
     Indication: PAIN PROPHYLAXIS
     Dosage: UNK
     Dates: start: 20060901, end: 20080901
  2. ACETAMINOPHEN [Concomitant]
  3. YAZ [Suspect]
     Indication: PREMENSTRUAL SYNDROME
  4. VERAPAMIL [Concomitant]
  5. FLUCONAZOLE [Concomitant]
  6. FLINTSTONES [Concomitant]
     Dosage: UNK
     Dates: start: 19860101
  7. CALCIUM CARBONATE [Concomitant]
     Dosage: UNK
     Dates: start: 19860101
  8. VALIUM [Concomitant]
     Dosage: UNK
     Dates: start: 20080125
  9. YAZ [Suspect]
     Indication: ACNE
  10. OTHER ANALGESICS AND ANTIPYRETICS [Concomitant]
     Dosage: UNK
     Dates: start: 20071221
  11. YAZ [Suspect]
     Indication: CONTRACEPTION
     Dosage: UNK
     Dates: start: 20080611, end: 20081030
  12. RELPAX [Concomitant]
     Indication: MIGRAINE
     Dosage: UNK
     Dates: start: 20060901, end: 20080101
  13. DEPAKOTE [Concomitant]
     Dosage: UNK
     Dates: start: 20080125
  14. MEPERIDINE HCL [Concomitant]
     Dosage: 50 MG, BID
  15. DEMEROL [Concomitant]
  16. MINOCYCLINE HCL [Concomitant]

REACTIONS (14)
  - THROMBOPHLEBITIS [None]
  - HYPOAESTHESIA [None]
  - PAIN IN EXTREMITY [None]
  - INJURY [None]
  - FATIGUE [None]
  - OEDEMA PERIPHERAL [None]
  - VIITH NERVE PARALYSIS [None]
  - HEADACHE [None]
  - CEREBROVASCULAR ACCIDENT [None]
  - ASTHENIA [None]
  - JOB DISSATISFACTION [None]
  - PAIN [None]
  - EMOTIONAL DISTRESS [None]
  - SPEECH DISORDER [None]
